FAERS Safety Report 18598960 (Version 3)
Quarter: 2021Q1

REPORT INFORMATION
  Report Type: Report from Study
  Country: US (occurrence: US)
  Receive Date: 20201210
  Receipt Date: 20210123
  Transmission Date: 20210419
  Serious: No
  Sender: FDA-Public Use
  Company Number: NVSC2020US327214

PATIENT
  Age: 49 Year
  Sex: Male

DRUGS (1)
  1. COSENTYX [Suspect]
     Active Substance: SECUKINUMAB
     Indication: PSORIASIS
     Dosage: 300 MG Q WEEK FOR FIVE WEEKS ADN
     Route: 058
     Dates: start: 20201016

REACTIONS (2)
  - Psoriasis [Unknown]
  - Intercepted medication error [Recovered/Resolved]

NARRATIVE: CASE EVENT DATE: 20201016
